FAERS Safety Report 17792494 (Version 6)
Quarter: 2021Q1

REPORT INFORMATION
  Report Type: Report from Study
  Country: US (occurrence: US)
  Receive Date: 20200515
  Receipt Date: 20210118
  Transmission Date: 20210419
  Serious: Yes (Hospitalization, Other)
  Sender: FDA-Public Use
  Company Number: US-SHIRE-US202016141

PATIENT
  Sex: Male
  Weight: 93.42 kg

DRUGS (21)
  1. SUMATRIPTAN. [Concomitant]
     Active Substance: SUMATRIPTAN
     Dosage: UNK
     Route: 065
  2. HUMAN IMMUNOGLOBULIN; HYALURONIDASE [Suspect]
     Active Substance: HUMAN IMMUNOGLOBULIN G\HYALURONIDASE RECOMBINANT HUMAN
     Indication: ASTHMA
     Dosage: 80 GRAM, EVERY 4 WK
     Route: 058
     Dates: start: 20150210
  3. COMBIVENT [Concomitant]
     Active Substance: ALBUTEROL SULFATE\IPRATROPIUM BROMIDE
     Dosage: UNK
     Route: 065
  4. LMX4 [Concomitant]
     Active Substance: LIDOCAINE
     Dosage: UNK
     Route: 065
  5. ACETAMINOPHEN. [Concomitant]
     Active Substance: ACETAMINOPHEN
     Dosage: UNK
     Route: 065
  6. SINGULAIR [Concomitant]
     Active Substance: MONTELUKAST SODIUM
     Dosage: UNK
     Route: 065
  7. HUMAN IMMUNOGLOBULIN; HYALURONIDASE [Suspect]
     Active Substance: HUMAN IMMUNOGLOBULIN G\HYALURONIDASE RECOMBINANT HUMAN
     Indication: PRIMARY IMMUNODEFICIENCY SYNDROME
     Dosage: 80 GRAM, EVERY 4 WK
     Route: 058
     Dates: start: 20150209
  8. LISINOPRIL. [Concomitant]
     Active Substance: LISINOPRIL
     Dosage: UNK
     Route: 065
  9. IPRATROPIUM/ALBUTEROL [Concomitant]
     Active Substance: ALBUTEROL\IPRATROPIUM
     Dosage: UNK
     Route: 065
  10. CEFPODOXIME [Concomitant]
     Active Substance: CEFPODOXIME
     Indication: BRONCHITIS
     Dosage: 200 MILLIGRAM
     Route: 065
  11. HUMAN IMMUNOGLOBULIN; HYALURONIDASE [Suspect]
     Active Substance: HUMAN IMMUNOGLOBULIN G\HYALURONIDASE RECOMBINANT HUMAN
     Indication: IMMUNODEFICIENCY COMMON VARIABLE
     Dosage: 80 GRAM, EVERY 4 WK
     Route: 058
     Dates: start: 20150205
  12. EPINEPHRINE. [Concomitant]
     Active Substance: EPINEPHRINE
     Dosage: UNK
     Route: 065
  13. PREVACID [Concomitant]
     Active Substance: LANSOPRAZOLE
     Dosage: UNK
     Route: 065
  14. DIPHENHYDRAMINE. [Concomitant]
     Active Substance: DIPHENHYDRAMINE
     Dosage: UNK
     Route: 065
  15. LIDOCAINE. [Concomitant]
     Active Substance: LIDOCAINE
     Dosage: UNK
     Route: 065
  16. AZITHROMYCIN ANHYDROUS. [Concomitant]
     Active Substance: AZITHROMYCIN ANHYDROUS
     Indication: BRONCHITIS
     Dosage: 200 MILLIGRAM
     Route: 065
  17. NORMAL SALINE [Concomitant]
     Active Substance: SODIUM CHLORIDE
     Dosage: UNK
     Route: 065
  18. XOLAIR [Concomitant]
     Active Substance: OMALIZUMAB
     Dosage: UNK
     Route: 065
  19. IPRATROPIUM [Concomitant]
     Active Substance: IPRATROPIUM
     Dosage: UNK
     Route: 065
  20. SYMBICORT [Concomitant]
     Active Substance: BUDESONIDE\FORMOTEROL FUMARATE DIHYDRATE
     Dosage: UNK
     Route: 065
  21. DUPIXENT [Concomitant]
     Active Substance: DUPILUMAB
     Indication: BRONCHITIS
     Route: 065

REACTIONS (7)
  - Injection site extravasation [Unknown]
  - Cough [Recovering/Resolving]
  - Bronchitis [Unknown]
  - Skin exfoliation [Unknown]
  - Injection site vesicles [Unknown]
  - Administration site bruise [Unknown]
  - Infusion site erythema [Unknown]
